FAERS Safety Report 20477527 (Version 1)
Quarter: 2022Q1

REPORT INFORMATION
  Report Type: Spontaneous
  Country: GB (occurrence: GB)
  Receive Date: 20220216
  Receipt Date: 20220216
  Transmission Date: 20220424
  Serious: Yes (Other)
  Sender: FDA-Public Use
  Company Number: GB-MHRA-TPP50876688C7598106YC1643709973089

PATIENT
  Age: 75 Year
  Sex: Male
  Weight: 69 kg

DRUGS (9)
  1. CLARITHROMYCIN [Suspect]
     Active Substance: CLARITHROMYCIN
     Indication: Product used for unknown indication
     Dosage: 500 MILLIGRAM, BID, TABLET
     Route: 065
     Dates: start: 20220128, end: 20220201
  2. AMITRIPTYLINE HYDROCHLORIDE [Concomitant]
     Active Substance: AMITRIPTYLINE HYDROCHLORIDE
     Indication: Product used for unknown indication
     Dosage: 1 DOSAGE FORM, DAILY, NIGHTLY.
     Route: 065
     Dates: start: 20220111
  3. BIMATOPROST [Concomitant]
     Active Substance: BIMATOPROST
     Indication: Product used for unknown indication
     Dosage: 1 GTT DROPS, BID, NIGHTLY
     Route: 065
     Dates: start: 20210930
  4. FLUCLOXACILLIN [Concomitant]
     Active Substance: FLUCLOXACILLIN
     Indication: Product used for unknown indication
     Dosage: 1 DOSAGE FORM, QID
     Route: 065
     Dates: start: 20220111, end: 20220118
  5. FUSIDIC ACID [Concomitant]
     Active Substance: FUSIDIC ACID
     Indication: Product used for unknown indication
     Dosage: 1 DOSAGE FORM, TID
     Route: 065
     Dates: start: 20220128
  6. LANSOPRAZOLE [Concomitant]
     Active Substance: LANSOPRAZOLE
     Indication: Product used for unknown indication
     Dosage: 1 DOSAGE FORM, DAILY
     Route: 065
     Dates: start: 20210930
  7. MEBEVERINE HYDROCHLORIDE [Concomitant]
     Active Substance: MEBEVERINE HYDROCHLORIDE
     Indication: Product used for unknown indication
     Dosage: TAKE ONE TABLET THREE TIMES A DAY 20 MINUTES BE...
     Route: 065
     Dates: start: 20211206, end: 20220103
  8. PIROXICAM [Concomitant]
     Active Substance: PIROXICAM
     Indication: Product used for unknown indication
     Dosage: APPLY TO THE AFFECTED AREA(S) THREE OR FOUR TIM...
     Route: 065
     Dates: start: 20211206
  9. SALICYLIC ACID [Concomitant]
     Active Substance: SALICYLIC ACID
     Indication: Product used for unknown indication
     Dosage: APPLY ONCE DAILY
     Route: 065
     Dates: start: 20220111, end: 20220118

REACTIONS (3)
  - Dyspnoea [Recovered/Resolved]
  - Vomiting [Recovered/Resolved]
  - Headache [Recovered/Resolved]

NARRATIVE: CASE EVENT DATE: 20220201
